FAERS Safety Report 5323432-6 (Version None)
Quarter: 2007Q2

REPORT INFORMATION
  Report Type: 
  Country: None (occurrence: None)
  Receive Date: 20070514
  Receipt Date: 20070504
  Transmission Date: 20071010
  Serious: Yes (Hospitalization, Other)
  Sender: FDA-Public Use
  Company Number: PHBS2007AR07801

PATIENT
  Age: 48 Year
  Sex: Female

DRUGS (4)
  1. ZELMAC [Suspect]
     Indication: IRRITABLE BOWEL SYNDROME
     Dosage: 12 MG, QD
     Route: 065
     Dates: start: 20060101, end: 20070501
  2. METFORMIN HCL [Concomitant]
     Indication: DIABETES MELLITUS NON-INSULIN-DEPENDENT
     Dosage: 500 MG, QD
  3. ATENOLOL [Concomitant]
     Indication: HYPERTENSION
     Dosage: 50 MG, QD
     Route: 065
  4. ENALAPRIL [Concomitant]
     Indication: HYPERTENSION
     Dosage: 50 MG, QD
     Route: 065

REACTIONS (5)
  - ANGINA UNSTABLE [None]
  - CEREBELLAR SYNDROME [None]
  - CEREBROVASCULAR ACCIDENT [None]
  - GAIT DISTURBANCE [None]
  - PARAESTHESIA [None]
